FAERS Safety Report 12237084 (Version 1)
Quarter: 2016Q2

REPORT INFORMATION
  Report Type: Spontaneous
  Country: US (occurrence: None)
  Receive Date: 20160404
  Receipt Date: 20160404
  Transmission Date: 20160815
  Serious: Yes (Disabling)
  Sender: FDA-Public Use
  Company Number: None

PATIENT
  Age: 74 Year
  Sex: Female
  Weight: 80.74 kg

DRUGS (1)
  1. TROSPIUM CHLORIDE ER [Suspect]
     Active Substance: TROSPIUM CHLORIDE
     Indication: NOCTURIA
     Dosage: 60 MG 1 PILL 5PM BEFORE MEAL MOUTH
     Route: 048
     Dates: start: 20160308, end: 20160309

REACTIONS (2)
  - Constipation [None]
  - Vision blurred [None]

NARRATIVE: CASE EVENT DATE: 20160308
